FAERS Safety Report 8495613 (Version 2)
Quarter: 2013Q2

REPORT INFORMATION
  Report Type: Spontaneous
  Country: US (occurrence: US)
  Receive Date: 20120405
  Receipt Date: 20130426
  Transmission Date: 20140414
  Serious: Yes (Hospitalization, Other)
  Sender: FDA-Public Use
  Company Number: US-PFIZER INC-2012082172

PATIENT
  Age: 57 Year
  Sex: Female
  Weight: 86.2 kg

DRUGS (2)
  1. LYRICA [Suspect]
     Indication: FIBROMYALGIA
     Dosage: 150 MG, 2X/DAY
     Route: 048
     Dates: start: 20111201
  2. LYRICA [Suspect]
     Dosage: 200 MG, 3X/DAY
     Route: 048

REACTIONS (11)
  - Unresponsive to stimuli [Not Recovered/Not Resolved]
  - Chest pain [Unknown]
  - Fall [Unknown]
  - Memory impairment [Not Recovered/Not Resolved]
  - Malaise [Not Recovered/Not Resolved]
  - Feeling drunk [Not Recovered/Not Resolved]
  - Back pain [Unknown]
  - Joint injury [Unknown]
  - Somnolence [Unknown]
  - Muscular weakness [Unknown]
  - Hypotonia [Unknown]
